FAERS Safety Report 9517262 (Version 1)
Quarter: 2013Q3

REPORT INFORMATION
  Report Type: Spontaneous
  Country: GB (occurrence: GB)
  Receive Date: 20130911
  Receipt Date: 20130911
  Transmission Date: 20140515
  Serious: Yes (Other)
  Sender: FDA-Public Use
  Company Number: GB-VERTEX PHARMACEUTICALS INC-2013-009475

PATIENT
  Sex: Male

DRUGS (1)
  1. INCIVO [Suspect]
     Indication: CHRONIC HEPATITIS C

REACTIONS (1)
  - Psychotic disorder [Unknown]
